FAERS Safety Report 15168320 (Version 3)
Quarter: 2020Q2

REPORT INFORMATION
  Report Type: Spontaneous
  Country: DE (occurrence: DE)
  Receive Date: 20180719
  Receipt Date: 20200416
  Transmission Date: 20200713
  Serious: Yes (Other)
  Sender: FDA-Public Use
  Company Number: PHHY2013DE176396

PATIENT
  Age: 62 Year
  Sex: Female
  Weight: 88 kg

DRUGS (12)
  1. BEVACIZUMAB. [Suspect]
     Active Substance: BEVACIZUMAB
     Indication: OVARIAN CANCER
     Dosage: UNK
     Route: 042
  2. CISPLATIN. [Concomitant]
     Active Substance: CISPLATIN
     Indication: OVARIAN CANCER
     Dosage: 600 MG, UNK
     Route: 042
  3. CARBOPLATIN. [Suspect]
     Active Substance: CARBOPLATIN
     Dosage: 81 MG
     Route: 042
     Dates: start: 20130507, end: 20130507
  4. PACLITAXEL. [Suspect]
     Active Substance: PACLITAXEL
     Indication: OVARIAN CANCER
     Dosage: 211 MG, UNK
     Route: 042
     Dates: start: 20130215
  5. PACLITAXEL. [Suspect]
     Active Substance: PACLITAXEL
     Dosage: 351 MG, UNK
     Route: 042
     Dates: start: 20130801
  6. BEVACIZUMAB. [Suspect]
     Active Substance: BEVACIZUMAB
     Dosage: 1346 MG, UNK
     Route: 042
     Dates: start: 20130507
  7. BEVACIZUMAB. [Suspect]
     Active Substance: BEVACIZUMAB
     Dosage: 1320 MG
     Route: 042
     Dates: start: 20140206
  8. DEXAMETHASONE. [Concomitant]
     Active Substance: DEXAMETHASONE
     Indication: PRODUCT USED FOR UNKNOWN INDICATION
     Dosage: 8 MG, QD
     Route: 042
     Dates: start: 20130215, end: 20130806
  9. CARBOPLATIN. [Suspect]
     Active Substance: CARBOPLATIN
     Indication: OVARIAN CANCER
     Dosage: 600 MG, UNK
     Route: 042
  10. CARBOPLATIN. [Suspect]
     Active Substance: CARBOPLATIN
     Dosage: 81 MG
     Route: 042
     Dates: start: 20130328, end: 20130328
  11. PACLITAXEL. [Suspect]
     Active Substance: PACLITAXEL
     Dosage: 355 MG, UNK
     Route: 042
     Dates: start: 20130507, end: 20130507
  12. BEVACIZUMAB. [Suspect]
     Active Substance: BEVACIZUMAB
     Dosage: 1320 MG, UNK
     Route: 042
     Dates: start: 20130308

REACTIONS (10)
  - Leukopenia [Recovered/Resolved]
  - Nausea [Recovered/Resolved]
  - Paraesthesia [Not Recovered/Not Resolved]
  - Stomatitis [Not Recovered/Not Resolved]
  - Toothache [Recovered/Resolved]
  - Anaphylactic reaction [Recovered/Resolved]
  - Cystitis [Recovered/Resolved]
  - Impaired healing [Not Recovered/Not Resolved]
  - Cystitis [Recovered/Resolved]
  - Diarrhoea [Recovered/Resolved]

NARRATIVE: CASE EVENT DATE: 20130308
